FAERS Safety Report 18116263 (Version 2)
Quarter: 2021Q4

REPORT INFORMATION
  Report Type: Spontaneous
  Country: US (occurrence: US)
  Receive Date: 20200805
  Receipt Date: 20211108
  Transmission Date: 20220303
  Serious: Yes (Other)
  Sender: FDA-Public Use
  Company Number: US-GILEAD-2020-0488774

PATIENT
  Age: 45 Year
  Sex: Male
  Weight: 80.726 kg

DRUGS (28)
  1. TRUVADA [Suspect]
     Active Substance: EMTRICITABINE\TENOFOVIR DISOPROXIL FUMARATE
     Indication: HIV infection
     Dosage: UNK
     Route: 065
     Dates: start: 20110224, end: 20131007
  2. ATRIPLA [Suspect]
     Active Substance: EFAVIRENZ\EMTRICITABINE\TENOFOVIR DISOPROXIL FUMARATE
     Indication: HIV infection
     Dosage: UNK
     Route: 065
     Dates: start: 200610, end: 201102
  3. BUSPIRONE [Concomitant]
     Active Substance: BUSPIRONE HYDROCHLORIDE
  4. COMBIVIR [Concomitant]
     Active Substance: LAMIVUDINE\ZIDOVUDINE
  5. EPIVIR [Concomitant]
     Active Substance: LAMIVUDINE
  6. LEXIVA [Concomitant]
     Active Substance: FOSAMPRENAVIR CALCIUM
  7. NORVIR [Concomitant]
     Active Substance: RITONAVIR
  8. SUSTIVA [Concomitant]
     Active Substance: EFAVIRENZ
  9. TIVICAY [Concomitant]
     Active Substance: DOLUTEGRAVIR SODIUM
  10. VIDEX [Concomitant]
     Active Substance: DIDANOSINE
  11. VIRAMUNE [Concomitant]
     Active Substance: NEVIRAPINE
  12. ZIAGEN [Concomitant]
     Active Substance: ABACAVIR SULFATE
  13. ACYCLOVIR [Concomitant]
     Active Substance: ACYCLOVIR
  14. DICLOFENAC [Concomitant]
     Active Substance: DICLOFENAC
  15. ACETAMINOPHEN AND CODEINE [Concomitant]
     Active Substance: ACETAMINOPHEN\CODEINE PHOSPHATE
  16. ALPRAZOLAM [Concomitant]
     Active Substance: ALPRAZOLAM
  17. AMLODIPINE BESYLATE [Concomitant]
     Active Substance: AMLODIPINE BESYLATE
  18. ASPIRIN [Concomitant]
     Active Substance: ASPIRIN
  19. BANOPHEN [Concomitant]
     Active Substance: DIPHENHYDRAMINE HYDROCHLORIDE
  20. BIDIL [Concomitant]
     Active Substance: HYDRALAZINE HYDROCHLORIDE\ISOSORBIDE DINITRATE
  21. CALCIUM ACETATE [Concomitant]
     Active Substance: CALCIUM ACETATE
  22. CARVEDILOL [Concomitant]
     Active Substance: CARVEDILOL
  23. CIPROFLOXACIN [Concomitant]
     Active Substance: CIPROFLOXACIN
  24. CLONAZEPAM [Concomitant]
     Active Substance: CLONAZEPAM
  25. CLONIDINE [Concomitant]
     Active Substance: CLONIDINE
  26. CYCLOBENZAPRINE [Concomitant]
     Active Substance: CYCLOBENZAPRINE
  27. DICYCLOMINE CO [Concomitant]
  28. DOXAZOSIN MESYLATE [Concomitant]
     Active Substance: DOXAZOSIN MESYLATE

REACTIONS (17)
  - End stage renal disease [Not Recovered/Not Resolved]
  - Jaw fracture [Not Recovered/Not Resolved]
  - Angina pectoris [Not Recovered/Not Resolved]
  - Nephrectomy [Unknown]
  - Renal injury [Unknown]
  - Chronic kidney disease [Not Recovered/Not Resolved]
  - Renal failure [Unknown]
  - Periodontal disease [Unknown]
  - Arterial disorder [Not Recovered/Not Resolved]
  - Dysstasia [Unknown]
  - Gait disturbance [Unknown]
  - Emotional distress [Not Recovered/Not Resolved]
  - Depression [Not Recovered/Not Resolved]
  - Bone density decreased [Not Recovered/Not Resolved]
  - Anxiety [Not Recovered/Not Resolved]
  - Asthenia [Unknown]
  - Pain [Not Recovered/Not Resolved]

NARRATIVE: CASE EVENT DATE: 20100101
